FAERS Safety Report 13898681 (Version 1)
Quarter: 2017Q3

REPORT INFORMATION
  Report Type: Spontaneous
  Country: US (occurrence: US)
  Receive Date: 20170823
  Receipt Date: 20170823
  Transmission Date: 20171127
  Serious: No
  Sender: FDA-Public Use
  Company Number: US-MAYNE PHARMA-2017MYN000663

PATIENT

DRUGS (1)
  1. ESTAZOLAM. [Suspect]
     Active Substance: ESTAZOLAM
     Dosage: 1 MG, AT BEDTIME
     Route: 048
     Dates: start: 20170401

REACTIONS (2)
  - Drug ineffective [Unknown]
  - Product substitution issue [Unknown]

NARRATIVE: CASE EVENT DATE: 20170401
